FAERS Safety Report 9466965 (Version 3)
Quarter: 2013Q3

REPORT INFORMATION
  Report Type: Spontaneous
  Country: ZA (occurrence: ZA)
  Receive Date: 20130820
  Receipt Date: 20130918
  Transmission Date: 20140515
  Serious: Yes (Death)
  Sender: FDA-Public Use
  Company Number: ZA-PFIZER INC-2013236433

PATIENT
  Age: 43 Year
  Sex: Male
  Weight: 95.6 kg

DRUGS (5)
  1. CELEBREX [Suspect]
     Indication: PAIN
     Dosage: 200 MG, DAILY
     Dates: start: 20130701
  2. LYRICA [Suspect]
     Indication: PAIN
     Dosage: 75 MG, AT NIGHT (NOCTE)
     Dates: start: 20130701
  3. PREXUM [Concomitant]
     Indication: HYPERTENSION
     Dosage: 4 MG, UNK
  4. HYDROCHLOROTHIAZIDE [Suspect]
     Dosage: UNK
  5. PREXUM PLUS [Concomitant]
     Indication: HYPERTENSION
     Dosage: UNK
     Dates: start: 20130701

REACTIONS (2)
  - Acute myocardial infarction [Fatal]
  - Sudden death [Fatal]
